FAERS Safety Report 22589588 (Version 1)
Quarter: 2023Q2

REPORT INFORMATION
  Report Type: Spontaneous
  Country: ZA (occurrence: ZA)
  Receive Date: 20230612
  Receipt Date: 20230612
  Transmission Date: 20230722
  Serious: Yes (Death, Other)
  Sender: FDA-Public Use
  Company Number: ZA-LUPIN HEALTHCARE (UK) LIMITED-2023-04462

PATIENT

DRUGS (6)
  1. LEVETIRACETAM [Suspect]
     Active Substance: LEVETIRACETAM
     Indication: Epilepsy
     Dosage: 250 MG
     Route: 048
     Dates: end: 202305
  2. INDAPAMIDE [Suspect]
     Active Substance: INDAPAMIDE
     Indication: Diuretic therapy
     Dosage: 2.5 MG
     Route: 048
     Dates: end: 202305
  3. GEMFIBROZIL [Suspect]
     Active Substance: GEMFIBROZIL
     Indication: Blood cholesterol abnormal
     Dosage: 20 MG
     Route: 048
     Dates: end: 202305
  4. SPIRONOLACTONE [Suspect]
     Active Substance: SPIRONOLACTONE
     Indication: Diuretic therapy
     Dosage: 25 MG
     Route: 048
     Dates: end: 202305
  5. METFORMIN HYDROCHLORIDE [Suspect]
     Active Substance: METFORMIN HYDROCHLORIDE
     Indication: Diabetes mellitus
     Dosage: 850 MG
     Route: 048
     Dates: end: 202305
  6. DONEPEZIL HYDROCHLORIDE [Suspect]
     Active Substance: DONEPEZIL HYDROCHLORIDE
     Indication: Dementia
     Dosage: 10 MG
     Route: 048
     Dates: end: 202305

REACTIONS (1)
  - Death [Fatal]
